FAERS Safety Report 5031202-1 (Version None)
Quarter: 2006Q2

REPORT INFORMATION
  Report Type: 
  Country: None (occurrence: None)
  Receive Date: 20060621
  Receipt Date: 20060313
  Transmission Date: 20061013
  Serious: No
  Sender: FDA-Public Use
  Company Number: US-GLAXOSMITHKLINE-A0597351A

PATIENT
  Age: 72 Year
  Sex: Male

DRUGS (7)
  1. AVANDARYL [Suspect]
     Dosage: 4MG TWICE PER DAY
     Route: 048
     Dates: start: 20060201
  2. METFORMIN HCL [Concomitant]
  3. LOTREL [Concomitant]
  4. ZOCOR [Concomitant]
  5. ASPIRIN [Concomitant]
  6. SOTALOL HCL [Concomitant]
  7. PRILOSEC [Concomitant]

REACTIONS (2)
  - BLOOD GLUCOSE DECREASED [None]
  - HAEMATURIA [None]
